FAERS Safety Report 5001260-9 (Version None)
Quarter: 2006Q2

REPORT INFORMATION
  Report Type: 
  Country: None (occurrence: None)
  Receive Date: 20060512
  Receipt Date: 20060504
  Transmission Date: 20061013
  Serious: Yes (Other)
  Sender: FDA-Public Use
  Company Number: JP-ABBOTT-06P-087-0332485-00

PATIENT
  Age: 6 Year
  Sex: Male

DRUGS (8)
  1. DEPAKENE [Suspect]
     Indication: EPILEPSY
     Route: 048
     Dates: start: 20000630, end: 20021210
  2. DEPAKENE [Suspect]
     Route: 048
     Dates: start: 20021211
  3. MYSTAN [Suspect]
     Indication: EPILEPSY
     Route: 048
     Dates: start: 20030913, end: 20050510
  4. MYSTAN [Suspect]
     Route: 048
     Dates: start: 20050511
  5. ZONISAMIDE [Suspect]
     Indication: EPILEPSY
     Route: 048
     Dates: start: 20030913, end: 20040120
  6. ZONISAMIDE [Suspect]
     Route: 048
     Dates: start: 20040121, end: 20040523
  7. ZONISAMIDE [Suspect]
     Route: 048
     Dates: start: 20040524
  8. CYCLOSPORINE [Suspect]
     Indication: HISTIOCYTOSIS HAEMATOPHAGIC
     Route: 048
     Dates: start: 20000729, end: 20010509

REACTIONS (3)
  - ATELECTASIS [None]
  - PNEUMONIA [None]
  - RENAL TUBULAR ACIDOSIS [None]
